FAERS Safety Report 8587424-6 (Version None)
Quarter: 2012Q3

REPORT INFORMATION
  Report Type: 
  Country: None (occurrence: None)
  Receive Date: 20120810
  Receipt Date: 20111220
  Transmission Date: 20120928
  Serious: No
  Sender: FDA-Public Use
  Company Number: US-ASTRAZENECA-2011SE77467

PATIENT

DRUGS (5)
  1. SYNTHROID [Concomitant]
  2. LISINOPRIL [Suspect]
     Route: 048
  3. ANASTROZOLE [Suspect]
     Route: 048
  4. COZAAR [Concomitant]
  5. PRAVASTATIN [Concomitant]

REACTIONS (2)
  - DRUG HYPERSENSITIVITY [None]
  - COUGH [None]
